FAERS Safety Report 9422286 (Version 4)
Quarter: 2013Q4

REPORT INFORMATION
  Report Type: Spontaneous
  Country: US (occurrence: US)
  Receive Date: 20130726
  Receipt Date: 20131127
  Transmission Date: 20140711
  Serious: Yes (Hospitalization, Disabling, Other)
  Sender: FDA-Public Use
  Company Number: US-009507513-1307USA012861

PATIENT
  Sex: Female
  Weight: 61.68 kg

DRUGS (2)
  1. FOSAMAX [Suspect]
     Indication: OSTEOPOROSIS
     Dosage: 10 MG, UNK
     Route: 048
     Dates: start: 19951001, end: 19981231
  2. VITAMIN D (UNSPECIFIED) [Concomitant]

REACTIONS (61)
  - Open reduction of fracture [Unknown]
  - Humerus fracture [Unknown]
  - Surgery [Unknown]
  - Bone debridement [Unknown]
  - Condition aggravated [Unknown]
  - Osteonecrosis of jaw [Not Recovered/Not Resolved]
  - Dental caries [Unknown]
  - Oral surgery [Unknown]
  - Oral surgery [Unknown]
  - Exposed bone in jaw [Unknown]
  - Oral infection [Unknown]
  - Debridement [Unknown]
  - Myofascial pain syndrome [Unknown]
  - Fistula discharge [Unknown]
  - Fistula [Unknown]
  - Anxiety [Unknown]
  - Tooth extraction [Unknown]
  - Tooth disorder [Unknown]
  - Tooth extraction [Unknown]
  - Tooth extraction [Unknown]
  - Dental prosthesis placement [Unknown]
  - Loose tooth [Unknown]
  - Debridement [Unknown]
  - Tooth infection [Unknown]
  - Facial bones fracture [Unknown]
  - Debridement [Unknown]
  - Infection [Unknown]
  - Cerumen impaction [Unknown]
  - Hypertension [Unknown]
  - Urinary tract infection [Unknown]
  - Chronic obstructive pulmonary disease [Unknown]
  - Rhinitis [Unknown]
  - Exposure to mould [Unknown]
  - Asthma [Unknown]
  - Panic disorder without agoraphobia [Unknown]
  - Bronchitis [Unknown]
  - Carotid artery stenosis [Unknown]
  - Cerumen impaction [Unknown]
  - Depression [Unknown]
  - Cardiac murmur [Unknown]
  - Panic attack [Unknown]
  - Urinary tract infection [Unknown]
  - Lymphadenitis [Unknown]
  - Pulmonary function test abnormal [Unknown]
  - Dyspnoea [Unknown]
  - Iron deficiency [Unknown]
  - Arthritis [Unknown]
  - Foreign body in eye [Unknown]
  - Osteomyelitis acute [Unknown]
  - Iron deficiency [Unknown]
  - Intertrigo [Unknown]
  - Onychomycosis [Unknown]
  - Cataract [Unknown]
  - Hysterectomy [Unknown]
  - Local swelling [Unknown]
  - Periodontal disease [Unknown]
  - Jaw cyst [Unknown]
  - Arthralgia [Unknown]
  - Diarrhoea [Unknown]
  - Abdominal pain [Unknown]
  - Osteomyelitis [Unknown]
